FAERS Safety Report 10311413 (Version 4)
Quarter: 2015Q2

REPORT INFORMATION
  Report Type: Spontaneous
  Country: US (occurrence: US)
  Receive Date: 20140717
  Receipt Date: 20150414
  Transmission Date: 20150821
  Serious: Yes (Hospitalization)
  Sender: FDA-Public Use
  Company Number: US-009507513-1407USA006202

PATIENT
  Sex: Male
  Weight: 95.24 kg

DRUGS (1)
  1. PROPECIA [Suspect]
     Active Substance: FINASTERIDE
     Indication: ANDROGENETIC ALOPECIA
     Dosage: 1 MG, QD
     Route: 048
     Dates: start: 19980514, end: 20051220

REACTIONS (31)
  - Penile size reduced [Unknown]
  - Loss of libido [Unknown]
  - Hormone level abnormal [Unknown]
  - Hepatic steatosis [Unknown]
  - Anxiety [Not Recovered/Not Resolved]
  - Dizziness [Not Recovered/Not Resolved]
  - Erectile dysfunction [Not Recovered/Not Resolved]
  - Liver function test abnormal [Unknown]
  - Endocrine disorder [Not Recovered/Not Resolved]
  - Genital hypoaesthesia [Unknown]
  - Panic attack [Not Recovered/Not Resolved]
  - Nephrolithiasis [Unknown]
  - Epididymitis [Unknown]
  - Haematuria [Not Recovered/Not Resolved]
  - Soft tissue injury [Not Recovered/Not Resolved]
  - Brain injury [Not Recovered/Not Resolved]
  - Groin pain [Unknown]
  - Testicular pain [Not Recovered/Not Resolved]
  - Nasal septum deviation [Unknown]
  - Haematuria [Unknown]
  - Dysuria [Unknown]
  - Sexual dysfunction [Not Recovered/Not Resolved]
  - Semen volume decreased [Unknown]
  - Ejaculation disorder [Unknown]
  - Depression [Not Recovered/Not Resolved]
  - Splenomegaly [Unknown]
  - Orchitis [Unknown]
  - Alcoholism [Unknown]
  - Hypogonadism male [Unknown]
  - Alcoholism [Unknown]
  - Gastrooesophageal reflux disease [Unknown]

NARRATIVE: CASE EVENT DATE: 199805
